FAERS Safety Report 19865460 (Version 11)
Quarter: 2025Q2

REPORT INFORMATION
  Report Type: Report from Study
  Country: US (occurrence: US)
  Receive Date: 20210921
  Receipt Date: 20250613
  Transmission Date: 20250716
  Serious: Yes (Hospitalization, Other)
  Sender: TAKEDA
  Company Number: US-TAKEDA-2021TUS029542

PATIENT
  Age: 61 Year
  Sex: Female
  Weight: 92 kg

DRUGS (40)
  1. HUMAN IMMUNOGLOBULIN G [Suspect]
     Active Substance: HUMAN IMMUNOGLOBULIN G
     Indication: Myasthenia gravis
     Dosage: 98 GRAM, Q4WEEKS
     Dates: start: 20210426
  2. HUMAN IMMUNOGLOBULIN G [Suspect]
     Active Substance: HUMAN IMMUNOGLOBULIN G
     Indication: Chronic inflammatory demyelinating polyradiculoneuropathy
     Dosage: 95 GRAM, Q4WEEKS
  3. HUMAN IMMUNOGLOBULIN G [Suspect]
     Active Substance: HUMAN IMMUNOGLOBULIN G
     Dosage: 98 GRAM, Q4WEEKS
  4. HUMAN IMMUNOGLOBULIN G [Suspect]
     Active Substance: HUMAN IMMUNOGLOBULIN G
     Dosage: 100 GRAM, Q4WEEKS
  5. FLONASE [Concomitant]
     Active Substance: FLUTICASONE PROPIONATE
  6. MESTINON [Concomitant]
     Active Substance: PYRIDOSTIGMINE BROMIDE
  7. PERCOCET [Concomitant]
     Active Substance: ACETAMINOPHEN\OXYCODONE HYDROCHLORIDE
  8. ACETAMINOPHEN [Concomitant]
     Active Substance: ACETAMINOPHEN
  9. DIPHENHYDRAMINE [Concomitant]
     Active Substance: DIPHENHYDRAMINE
  10. HEPARIN [Concomitant]
     Active Substance: HEPARIN SODIUM
  11. LIDOCAINE [Concomitant]
     Active Substance: LIDOCAINE
  12. SODIUM CHLORIDE [Concomitant]
     Active Substance: SODIUM CHLORIDE
  13. SODIUM CHLORIDE [Concomitant]
     Active Substance: SODIUM CHLORIDE
  14. EPINEPHRINE [Concomitant]
     Active Substance: EPINEPHRINE
  15. CYMBALTA [Concomitant]
     Active Substance: DULOXETINE HYDROCHLORIDE
  16. CELEBREX [Concomitant]
     Active Substance: CELECOXIB
  17. KLOR-CON [Concomitant]
     Active Substance: POTASSIUM CHLORIDE
  18. TIZANIDINE HYDROCHLORIDE [Concomitant]
     Active Substance: TIZANIDINE HYDROCHLORIDE
  19. CALCIUM [Concomitant]
     Active Substance: CALCIUM
  20. LISINOPRIL [Concomitant]
     Active Substance: LISINOPRIL
  21. FUROSEMIDE [Concomitant]
     Active Substance: FUROSEMIDE
  22. STOOL SOFTENER (DOCUSATE) [Concomitant]
     Active Substance: DOCUSATE
  23. FLUTICASONE PROPIONATE [Concomitant]
     Active Substance: FLUTICASONE PROPIONATE
  24. ONDANSETRON [Concomitant]
     Active Substance: ONDANSETRON
  25. PREDNISOLONE [Concomitant]
     Active Substance: PREDNISOLONE
  26. DOCUSATE SODIUM [Concomitant]
     Active Substance: DOCUSATE SODIUM
  27. METHYLPREDNISOLONE [Concomitant]
     Active Substance: METHYLPREDNISOLONE
  28. PROVERA [Concomitant]
     Active Substance: MEDROXYPROGESTERONE ACETATE
  29. SOLU-MEDROL [Concomitant]
     Active Substance: METHYLPREDNISOLONE SODIUM SUCCINATE
  30. ZOFRAN [Concomitant]
     Active Substance: ONDANSETRON HYDROCHLORIDE
  31. Lmx [Concomitant]
  32. ACTEMRA [Concomitant]
     Active Substance: TOCILIZUMAB
  33. METFORMIN HYDROCHLORIDE [Concomitant]
     Active Substance: METFORMIN HYDROCHLORIDE
  34. DIPHENHYDRAMINE HYDROCHLORIDE [Concomitant]
     Active Substance: DIPHENHYDRAMINE HYDROCHLORIDE
  35. OXYCODONE AND ACETAMINOPHEN [Concomitant]
     Active Substance: ACETAMINOPHEN\OXYCODONE HYDROCHLORIDE
  36. CARVEDILOL [Concomitant]
     Active Substance: CARVEDILOL
  37. BRIMONIDINE TARTRATE [Concomitant]
     Active Substance: BRIMONIDINE TARTRATE
  38. PREDNISONE [Concomitant]
     Active Substance: PREDNISONE
  39. NITROGLYCERIN [Concomitant]
     Active Substance: NITROGLYCERIN
  40. METHOCARBAMOL [Concomitant]
     Active Substance: METHOCARBAMOL

REACTIONS (20)
  - Colitis [Unknown]
  - Foot fracture [Unknown]
  - Blood pressure abnormal [Unknown]
  - Depressed mood [Unknown]
  - Fall [Unknown]
  - Muscle strain [Unknown]
  - Urinary tract infection [Unknown]
  - Ear infection [Unknown]
  - Cellulitis [Unknown]
  - Arthritis infective [Unknown]
  - Humerus fracture [Unknown]
  - Off label use [Unknown]
  - Sinusitis [Unknown]
  - Infusion site haemorrhage [Unknown]
  - Cold sweat [Unknown]
  - Rash [Unknown]
  - Flushing [Unknown]
  - Chills [Unknown]
  - Nausea [Unknown]
  - Headache [Unknown]

NARRATIVE: CASE EVENT DATE: 20210426
